FAERS Safety Report 16022369 (Version 3)
Quarter: 2020Q1

REPORT INFORMATION
  Report Type: Report from Study
  Country: EG (occurrence: EG)
  Receive Date: 20190301
  Receipt Date: 20200224
  Transmission Date: 20200409
  Serious: Yes (Death, Hospitalization)
  Sender: FDA-Public Use
  Company Number: PHHY2019EG044262

PATIENT
  Age: 33 Year
  Sex: Female

DRUGS (3)
  1. GLIVEC [Suspect]
     Active Substance: IMATINIB MESYLATE
     Indication: CHRONIC MYELOID LEUKAEMIA
     Dosage: 400 MG, QD
     Route: 048
     Dates: start: 2014, end: 201806
  2. TASIGNA [Suspect]
     Active Substance: NILOTINIB
     Indication: CHRONIC MYELOID LEUKAEMIA
     Dosage: 800 MG, QD (STOPPED 6 MONTHS AGO.)
     Route: 048
     Dates: start: 201810
  3. SPRYCEL [Suspect]
     Active Substance: DASATINIB
     Indication: CHRONIC MYELOID LEUKAEMIA
     Dosage: 1 DF, BID
     Route: 065
     Dates: start: 201905

REACTIONS (8)
  - Coma [Fatal]
  - Headache [Unknown]
  - Loss of consciousness [Unknown]
  - Optic nerve disorder [Not Recovered/Not Resolved]
  - Pyrexia [Unknown]
  - Platelet count decreased [Not Recovered/Not Resolved]
  - Blindness [Unknown]
  - Gastritis [Unknown]

NARRATIVE: CASE EVENT DATE: 201801
